FAERS Safety Report 19958934 (Version 1)
Quarter: 2021Q4

REPORT INFORMATION
  Report Type: Spontaneous
  Country: US (occurrence: US)
  Receive Date: 20211012
  Receipt Date: 20211012
  Transmission Date: 20220303
  Serious: No
  Sender: FDA-Public Use
  Company Number: None

PATIENT

DRUGS (2)
  1. CALCIUM CHLORIDE [Suspect]
     Active Substance: CALCIUM CHLORIDE
     Route: 042
  2. HEPARIN [Suspect]
     Active Substance: HEPARIN SODIUM

REACTIONS (4)
  - Product storage error [None]
  - Physical product label issue [None]
  - Product label confusion [None]
  - Packaging design issue [None]
